FAERS Safety Report 4998046-8 (Version None)
Quarter: 2006Q2

REPORT INFORMATION
  Report Type: 
  Country: None (occurrence: None)
  Receive Date: 20060510
  Receipt Date: 20060504
  Transmission Date: 20061013
  Serious: Yes (Hospitalization)
  Sender: FDA-Public Use
  Company Number: BG-JNJFOC-20060501804

PATIENT
  Age: 50 Year
  Sex: Male

DRUGS (2)
  1. RISPERDAL CONSTA [Suspect]
     Indication: SCHIZOPHRENIA
     Route: 030
  2. RISPOLEPT [Concomitant]
     Indication: SCHIZOPHRENIA
     Route: 048

REACTIONS (1)
  - LOSS OF CONSCIOUSNESS [None]
